FAERS Safety Report 16981916 (Version 3)
Quarter: 2019Q4

REPORT INFORMATION
  Report Type: Report from Study
  Country: None (occurrence: US)
  Receive Date: 20191101
  Receipt Date: 20191127
  Transmission Date: 20200122
  Serious: Yes (Other)
  Sender: FDA-Public Use
  Company Number: US-ABBVIE-19K-163-2981933-00

PATIENT
  Age: 16 Year
  Sex: Female

DRUGS (1)
  1. HUMIRA [Suspect]
     Active Substance: ADALIMUMAB
     Indication: JUVENILE IDIOPATHIC ARTHRITIS
     Route: 058
     Dates: start: 20190724

REACTIONS (19)
  - Injection site pain [Unknown]
  - Hyperhidrosis [Unknown]
  - Facial paralysis [Recovered/Resolved]
  - Paraesthesia [Unknown]
  - Asthenia [Unknown]
  - Headache [Not Recovered/Not Resolved]
  - Chills [Unknown]
  - Incorrect dose administered [Not Recovered/Not Resolved]
  - Cerebral disorder [Unknown]
  - Visual impairment [Unknown]
  - Hypoaesthesia [Unknown]
  - Injection site nodule [Unknown]
  - Palpitations [Unknown]
  - Nausea [Unknown]
  - Pain in extremity [Recovering/Resolving]
  - Ear infection [Recovered/Resolved]
  - Insomnia [Unknown]
  - Nausea [Not Recovered/Not Resolved]
  - Injection site bruising [Unknown]

NARRATIVE: CASE EVENT DATE: 2019
